FAERS Safety Report 4973827-5 (Version None)
Quarter: 2006Q2

REPORT INFORMATION
  Report Type: 
  Country: None (occurrence: None)
  Receive Date: 20060414
  Receipt Date: 20050817
  Transmission Date: 20061013
  Serious: Yes (Hospitalization)
  Sender: FDA-Public Use
  Company Number: US-MERCK-0508USA03255

PATIENT
  Age: 60 Year
  Sex: Male
  Weight: 77 kg

DRUGS (5)
  1. VIOXX [Suspect]
     Indication: PAIN IN EXTREMITY
     Route: 048
     Dates: start: 20000301, end: 20040201
  2. VIOXX [Suspect]
     Route: 048
     Dates: start: 20000301, end: 20040201
  3. VIOXX [Suspect]
     Route: 048
     Dates: start: 20000301, end: 20040201
  4. VIOXX [Suspect]
     Route: 048
     Dates: start: 20000301, end: 20040201
  5. ASPIRIN [Concomitant]
     Route: 065

REACTIONS (52)
  - ACUTE MYOCARDIAL INFARCTION [None]
  - ACUTE PULMONARY OEDEMA [None]
  - ANAEMIA [None]
  - ANGLE CLOSURE GLAUCOMA [None]
  - ANXIETY [None]
  - ARRHYTHMIA SUPRAVENTRICULAR [None]
  - ARTHRITIS [None]
  - ARTHRODESIS [None]
  - ATRIAL FIBRILLATION [None]
  - BLOOD CREATININE INCREASED [None]
  - BONE DEBRIDEMENT [None]
  - BRADYCARDIA [None]
  - C-REACTIVE PROTEIN INCREASED [None]
  - CARDIAC FAILURE CONGESTIVE [None]
  - CARDIAC PACEMAKER MALFUNCTION [None]
  - CARDIAC VALVE DISEASE [None]
  - CARPAL TUNNEL SYNDROME [None]
  - CHEST PAIN [None]
  - CHRONIC OBSTRUCTIVE PULMONARY DISEASE [None]
  - CLOSTRIDIAL INFECTION [None]
  - CORONARY ARTERY DISEASE [None]
  - DECUBITUS ULCER [None]
  - DIARRHOEA [None]
  - DIVERTICULUM [None]
  - DUODENITIS [None]
  - ENDOCARDITIS ENTEROCOCCAL [None]
  - ENDOCARDITIS STAPHYLOCOCCAL [None]
  - EXOSTOSIS [None]
  - FATIGUE [None]
  - GASTRITIS EROSIVE [None]
  - GASTROOESOPHAGEAL REFLUX DISEASE [None]
  - HAEMORRHOIDAL HAEMORRHAGE [None]
  - HYPERNATRAEMIA [None]
  - HYPERTRIGLYCERIDAEMIA [None]
  - HYPOKALAEMIA [None]
  - IMPLANTABLE DEFIBRILLATOR REPLACEMENT [None]
  - LEUKOCYTOSIS [None]
  - LOBAR PNEUMONIA [None]
  - MEDICAL DEVICE COMPLICATION [None]
  - MITRAL VALVE INCOMPETENCE [None]
  - MITRAL VALVE PROLAPSE [None]
  - OSTEOARTHRITIS [None]
  - OXYGEN SATURATION DECREASED [None]
  - PALPITATIONS [None]
  - PARAESTHESIA [None]
  - POSTOPERATIVE FEVER [None]
  - RED BLOOD CELL SEDIMENTATION RATE INCREASED [None]
  - RESPIRATORY FAILURE [None]
  - SPINAL COMPRESSION FRACTURE [None]
  - UPPER GASTROINTESTINAL HAEMORRHAGE [None]
  - VENTRICULAR TACHYCARDIA [None]
  - WEIGHT DECREASED [None]
